FAERS Safety Report 6300248-5 (Version None)
Quarter: 2009Q3

REPORT INFORMATION
  Report Type: 
  Country: None (occurrence: None)
  Receive Date: 20090803
  Receipt Date: 20090726
  Transmission Date: 20100115
  Serious: Yes (Life-Threatening)
  Sender: FDA-Public Use
  Company Number: 1-19303097

PATIENT
  Age: 66 Year
  Sex: Male
  Weight: 69.8539 kg

DRUGS (8)
  1. TRAMADOL HCL [Suspect]
     Indication: POSTOPERATIVE ANALGESIA
     Dosage: PCA, 14 DOSES, INTRAVENOUS
     Route: 042
  2. NIFEDIPINE [Concomitant]
  3. FENTANYL [Concomitant]
  4. PROPOFOL [Concomitant]
  5. CISATRACURIUM [Concomitant]
  6. REMIFENTANIL [Concomitant]
  7. ISOFLURANE [Concomitant]
  8. DIPYRONE INJ [Concomitant]

REACTIONS (7)
  - BRADYPNOEA [None]
  - DRUG TOXICITY [None]
  - FATIGUE [None]
  - MIOSIS [None]
  - RESPIRATORY DEPRESSION [None]
  - SOMNOLENCE [None]
  - UNRESPONSIVE TO STIMULI [None]
